FAERS Safety Report 21550164 (Version 1)
Quarter: 2022Q4

REPORT INFORMATION
  Report Type: Spontaneous
  Country: GB (occurrence: GB)
  Receive Date: 20221103
  Receipt Date: 20221103
  Transmission Date: 20230113
  Serious: Yes (Other)
  Sender: FDA-Public Use
  Company Number: GB-MHRA-MED-202210302008480850-SNGMY

PATIENT
  Age: 52 Year
  Weight: 58 kg

DRUGS (2)
  1. ESTRADIOL [Suspect]
     Active Substance: ESTRADIOL
     Dosage: UNK
  2. PROGESTERONE [Suspect]
     Active Substance: PROGESTERONE
     Dosage: UNK

REACTIONS (4)
  - Heavy menstrual bleeding [Not Recovered/Not Resolved]
  - Polymenorrhoea [Unknown]
  - Abdominal distension [Unknown]
  - Weight increased [Unknown]

NARRATIVE: CASE EVENT DATE: 20211130
